FAERS Safety Report 10397609 (Version 2)
Quarter: 2014Q3

REPORT INFORMATION
  Report Type: Report from Study
  Country: US (occurrence: US)
  Receive Date: 20140821
  Receipt Date: 20140827
  Transmission Date: 20150326
  Serious: Yes (Other)
  Sender: FDA-Public Use
  Company Number: US-ROCHE-1451437

PATIENT
  Age: 42 Year
  Sex: Male

DRUGS (2)
  1. CELLCEPT [Suspect]
     Active Substance: MYCOPHENOLATE MOFETIL\MYCOPHENOLATE MOFETIL HYDROCHLORIDE
     Indication: GRANULOMATOSIS WITH POLYANGIITIS
     Route: 065
  2. CELLCEPT [Suspect]
     Active Substance: MYCOPHENOLATE MOFETIL\MYCOPHENOLATE MOFETIL HYDROCHLORIDE
     Indication: MICROSCOPIC POLYANGIITIS

REACTIONS (10)
  - Glomerulonephritis [Unknown]
  - Fatigue [Unknown]
  - Haematuria [Unknown]
  - Proteinuria [Unknown]
  - Haemoptysis [Unknown]
  - Weight decreased [Unknown]
  - Dyspnoea [Unknown]
  - Nephrosclerosis [Unknown]
  - Blood creatinine increased [Unknown]
  - Asthenia [Unknown]
